FAERS Safety Report 9096601 (Version 2)
Quarter: 2013Q1

REPORT INFORMATION
  Report Type: Spontaneous
  Country: JP (occurrence: JP)
  Receive Date: 20130211
  Receipt Date: 20130218
  Transmission Date: 20140127
  Serious: Yes (Hospitalization, Other)
  Sender: FDA-Public Use
  Company Number: PHHY2013JP011725

PATIENT
  Age: 32 Year
  Sex: Female
  Weight: 49 kg

DRUGS (11)
  1. HYDRALAZINE [Suspect]
     Indication: HYPERTENSION
     Dosage: UNK UKN, UNK
     Route: 042
  2. FRESH FROZEN PLASMA [Concomitant]
     Dosage: 5 U, PER DAY (FOR 2 DAYS)
  3. FRESH FROZEN PLASMA [Concomitant]
     Dosage: 2 U, PER DAY (SUBSEQUENT DAYS)
  4. FRESH FROZEN PLASMA [Concomitant]
     Dosage: 2 U, EVERY 3-4 WEEKS (AFTER OPERATION)
  5. THIAMYLAL [Concomitant]
     Dosage: UNK UKN, UNK
  6. ROCURONIUM [Concomitant]
     Dosage: UNK UKN, UNK
  7. SEVOFLURANE [Concomitant]
     Dosage: UNK UKN, UNK
  8. NITROUS OXIDE [Concomitant]
     Dosage: UNK UKN, UNK
  9. MIDAZOLAM [Concomitant]
     Dosage: UNK UKN, UNK
  10. PHENTANYL [Concomitant]
     Dosage: UNK UKN, UNK
  11. REMIFENTANIL [Concomitant]
     Dosage: UNK UKN, UNK

REACTIONS (6)
  - Umbilical cord vascular disorder [Unknown]
  - Maternal hypertension affecting foetus [Unknown]
  - Renal impairment [Unknown]
  - Platelet count decreased [Recovering/Resolving]
  - Blood lactate dehydrogenase increased [Recovering/Resolving]
  - Maternal exposure during pregnancy [Unknown]
